FAERS Safety Report 10047991 (Version 1)
Quarter: 2014Q1

REPORT INFORMATION
  Report Type: Spontaneous
  Country: US (occurrence: US)
  Receive Date: 20140331
  Receipt Date: 20140331
  Transmission Date: 20141002
  Serious: No
  Sender: FDA-Public Use
  Company Number: US-009507513-1403USA008519

PATIENT
  Age: 3 Year
  Sex: Female

DRUGS (2)
  1. CLARITIN ORAL SOLUTION [Suspect]
     Indication: NASOPHARYNGITIS
     Dosage: 5 MG, ONCE
     Route: 048
     Dates: start: 20140303
  2. CLARITIN ORAL SOLUTION [Suspect]
     Dosage: 5 MG, ONCE
     Route: 048
     Dates: start: 20140304

REACTIONS (3)
  - Accidental overdose [Unknown]
  - Pyrexia [Not Recovered/Not Resolved]
  - Off label use [Unknown]
